FAERS Safety Report 5312891-0 (Version None)
Quarter: 2007Q1

REPORT INFORMATION
  Report Type: 
  Country: None (occurrence: None)
  Receive Date: 20070201
  Receipt Date: 20061227
  Transmission Date: 20070707
  Serious: No
  Sender: FDA-Public Use
  Company Number: 259575

PATIENT
  Age: 66 Year
  Sex: Female
  Weight: 133.8 kg

DRUGS (3)
  1. NOVOLOG [Suspect]
     Indication: INSULIN-REQUIRING TYPE II DIABETES MELLITUS
     Dosage: 15 IU, BID, SUBCUTANEOUS
     Route: 058
     Dates: start: 20061222
  2. LEVEMIR [Suspect]
     Indication: INSULIN-REQUIRING TYPE II DIABETES MELLITUS
     Dosage: 24 IU, QD, SUBCUTANEOUS
     Route: 058
     Dates: start: 20061222
  3. GLUCOPHAGE /00082701/(MEFORMIN) [Concomitant]

REACTIONS (1)
  - BLOOD GLUCOSE INCREASED [None]
